FAERS Safety Report 9453525 (Version 1)
Quarter: 2013Q3

REPORT INFORMATION
  Report Type: Spontaneous
  Country: US (occurrence: US)
  Receive Date: 20130812
  Receipt Date: 20130812
  Transmission Date: 20140515
  Serious: Yes (Disabling, Other)
  Sender: FDA-Public Use
  Company Number: US-THROMBOGENICS NV-JET-2013-083

PATIENT
  Sex: 0

DRUGS (1)
  1. JETREA [Suspect]
     Indication: VITREOUS ADHESIONS
     Dosage: 0.1 ML, ONE TIME DOSE
     Route: 031
     Dates: start: 20130502, end: 20130502

REACTIONS (7)
  - Photopsia [Not Recovered/Not Resolved]
  - Visual impairment [Not Recovered/Not Resolved]
  - Retinal oedema [Unknown]
  - Visual acuity reduced [Not Recovered/Not Resolved]
  - Eye pain [Unknown]
  - Photophobia [Unknown]
  - Vision blurred [Unknown]
